FAERS Safety Report 7753452-3 (Version None)
Quarter: 2011Q3

REPORT INFORMATION
  Report Type: 
  Country: None (occurrence: None)
  Receive Date: 20110915
  Receipt Date: 20110902
  Transmission Date: 20111222
  Serious: Yes (Death, Other)
  Sender: FDA-Public Use
  Company Number: US-ELI_LILLY_AND_COMPANY-US201108001274

PATIENT
  Sex: Female
  Weight: 60.317 kg

DRUGS (14)
  1. ASPIRIN [Concomitant]
     Dosage: 81 MG, QD
  2. CALCIUM CARBONATE [Concomitant]
     Dosage: UNK, QD
  3. METOPROLOL TARTRATE [Concomitant]
     Dosage: 25 MG, TID
  4. VITAMIN B [Concomitant]
  5. XANAX [Concomitant]
     Dosage: .5 MG, UNK
  6. FORTEO [Suspect]
     Indication: OSTEOPOROSIS
     Dosage: 20 UG, QD
     Dates: start: 20110617
  7. LASIX [Concomitant]
     Dosage: 20 UG, QD
  8. VITAMIN D [Concomitant]
  9. NEXIUM [Concomitant]
     Dosage: 40 MG, QD
  10. VITAMIN E [Concomitant]
  11. ALLEGRA [Concomitant]
     Dosage: 180 MG, QD
  12. WARFARIN SODIUM [Concomitant]
     Dosage: 3 MG, UNK
  13. DILTIAZEM [Concomitant]
     Dosage: 120 MG, QD
  14. ASCORBIC ACID [Concomitant]

REACTIONS (3)
  - ATRIAL FIBRILLATION [None]
  - HAEMORRHAGE INTRACRANIAL [None]
  - ABDOMINAL PAIN UPPER [None]
